FAERS Safety Report 16086953 (Version 2)
Quarter: 2019Q1

REPORT INFORMATION
  Report Type: Report from Study
  Country: JP (occurrence: JP)
  Receive Date: 20190318
  Receipt Date: 20190320
  Transmission Date: 20190418
  Serious: Yes (Death, Hospitalization, Other)
  Sender: FDA-Public Use
  Company Number: JP-009507513-1803JPN000528J

PATIENT
  Age: 65 Year
  Sex: Male
  Weight: 59 kg

DRUGS (21)
  1. FENTOS [Concomitant]
     Active Substance: FENTANYL
     Indication: TRANSITIONAL CELL CARCINOMA
     Dosage: 1 DF, QD
     Route: 065
  2. ZOLPIDEM TARTRATE OD [Concomitant]
     Active Substance: ZOLPIDEM TARTRATE
     Dosage: 5 MG, QD
     Route: 048
  3. NESINA [Concomitant]
     Active Substance: ALOGLIPTIN BENZOATE
     Dosage: 25 MG, QD
     Route: 048
  4. NICORANDIL [Concomitant]
     Active Substance: NICORANDIL
     Dosage: 15 MG, TID
     Route: 048
  5. SENNOSIDE [Concomitant]
     Active Substance: SENNOSIDES
     Dosage: 24 MG, QD
     Route: 048
  6. KEYTRUDA [Suspect]
     Active Substance: PEMBROLIZUMAB
     Indication: TRANSITIONAL CELL CARCINOMA
     Dosage: 200 MG, Q3W
     Route: 041
     Dates: start: 20180122, end: 20180122
  7. ETHYL ICOSAPENTATE [Concomitant]
     Active Substance: ICOSAPENT ETHYL
     Dosage: 900 MG, BID
     Route: 048
  8. PRIMPERAN [Concomitant]
     Active Substance: METOCLOPRAMIDE HYDROCHLORIDE
     Indication: TRANSITIONAL CELL CARCINOMA
     Dosage: 5 MG, PRN
     Route: 048
  9. PRIMPERAN [Concomitant]
     Active Substance: METOCLOPRAMIDE HYDROCHLORIDE
     Indication: PROPHYLAXIS
     Dosage: 10 MILLIGRAM, PRN
     Dates: start: 20180204
  10. HUMULIN R [Concomitant]
     Active Substance: INSULIN HUMAN
     Dosage: UNK
     Route: 051
  11. DENOTAS [Concomitant]
     Active Substance: CALCIUM CARBONATE\CHOLECALCIFEROL\MAGNESIUM CARBONATE
     Indication: PROPHYLAXIS
     Dosage: 2 DF, QD
     Route: 048
  12. SODIUM FERROUS CITRATE [Concomitant]
     Active Substance: SODIUM FERROUS CITRATE
     Indication: TRANSITIONAL CELL CARCINOMA
     Dosage: 50 MG, BID
     Route: 065
  13. CALONAL [Concomitant]
     Active Substance: ACETAMINOPHEN
     Indication: TRANSITIONAL CELL CARCINOMA
     Dosage: 500 MG, PRN
     Route: 048
  14. MAGMITT [Concomitant]
     Active Substance: MAGNESIUM OXIDE
     Dosage: 330 MG, TID
     Route: 048
  15. SOLACET F [Concomitant]
     Indication: TRANSITIONAL CELL CARCINOMA
     Dosage: 500 ML, QD
     Route: 051
     Dates: start: 20180202
  16. ABSTRAL [Concomitant]
     Active Substance: FENTANYL CITRATE
     Indication: TRANSITIONAL CELL CARCINOMA
     Dosage: 3 DF, PRN
     Route: 048
  17. CRESTOR [Concomitant]
     Active Substance: ROSUVASTATIN CALCIUM
     Dosage: 5 MG, QD
     Route: 048
  18. PAREPLUS [Concomitant]
     Active Substance: AMINO ACIDS\DEXTROSE\ELECTROLYTES NOS\VITAMINS
     Indication: TRANSITIONAL CELL CARCINOMA
     Dosage: 500 ML, QD
     Route: 051
     Dates: start: 20180202
  19. LYRICA [Concomitant]
     Active Substance: PREGABALIN
     Indication: TRANSITIONAL CELL CARCINOMA
     Dosage: 125 MG, QD
     Route: 048
  20. NEXIUM [Concomitant]
     Active Substance: ESOMEPRAZOLE MAGNESIUM
     Indication: PROPHYLAXIS
     Dosage: 20 MG, QD
     Route: 048
  21. ROZEREM [Concomitant]
     Active Substance: RAMELTEON
     Dosage: 8 MG, QD
     Route: 048
     Dates: start: 20180202

REACTIONS (4)
  - Malignant neoplasm progression [Fatal]
  - Enterocolitis [Not Recovered/Not Resolved]
  - Intestinal ischaemia [Not Recovered/Not Resolved]
  - Pneumatosis intestinalis [Not Recovered/Not Resolved]

NARRATIVE: CASE EVENT DATE: 201802
